FAERS Safety Report 9523719 (Version 1)
Quarter: 2013Q3

REPORT INFORMATION
  Report Type: Spontaneous
  Country: US (occurrence: US)
  Receive Date: 20130914
  Receipt Date: 20130914
  Transmission Date: 20140515
  Serious: No
  Sender: FDA-Public Use
  Company Number: US-B.I. PHARMACEUTICALS,INC./RIDGEFIELD-2013-BI-27331BP

PATIENT
  Age: 81 Year
  Sex: Female

DRUGS (1)
  1. COMBIVENT [Suspect]
     Indication: WHEEZING
     Dosage: DOSE PER APPLICATION: 20 MCG / 100 MCG;
     Route: 055
     Dates: start: 20130712

REACTIONS (1)
  - Off label use [Not Recovered/Not Resolved]
